FAERS Safety Report 21058954 (Version 2)
Quarter: 2022Q3

REPORT INFORMATION
  Report Type: Spontaneous
  Country: US (occurrence: US)
  Receive Date: 20220708
  Receipt Date: 20220729
  Transmission Date: 20221027
  Serious: No
  Sender: FDA-Public Use
  Company Number: US-009507513-2207USA000338

PATIENT
  Age: 79 Year
  Sex: Male
  Weight: 94.785 kg

DRUGS (31)
  1. JANUVIA [Suspect]
     Active Substance: SITAGLIPTIN PHOSPHATE
     Indication: Diabetes mellitus management
     Dosage: 25 MILLIGRAM, ONCE DAILY
     Route: 048
     Dates: start: 20220602, end: 20220607
  2. TYLENOL [Concomitant]
     Active Substance: ACETAMINOPHEN
     Indication: Pain
     Dosage: 500 MG EVERY 6 (SIX) HOURS AS NEEDED
     Route: 048
  3. PROVENTIL [Concomitant]
     Active Substance: ALBUTEROL
     Indication: Wheezing
     Dosage: STRENGTH: 90 MCG/ACTUATION; INHALE 2 PUFFS EVERY 4(FOUR) HOURS AS NEEDED
  4. ELIQUIS [Concomitant]
     Active Substance: APIXABAN
     Dosage: TAKE 1 TABLET TWICE DAILY
     Route: 048
  5. ASPIRIN [Concomitant]
     Active Substance: ASPIRIN
     Dosage: 81 MILLIGRAM (MG) DAILY
     Route: 048
  6. LIPITOR [Concomitant]
     Active Substance: ATORVASTATIN CALCIUM
     Dosage: 80 MILLIGRAM (MG) NIGHTLY
     Route: 048
  7. COREG [Concomitant]
     Active Substance: CARVEDILOL
     Dosage: 1 TABLET TWICE DAILY WITH MEALS
     Route: 048
  8. DDD CHOLECALCIFEROL (VITAMIN D3) [Concomitant]
     Dosage: 2000 UNITS(50 MCG) DAILY
     Route: 048
  9. NEXIUM 24HR [Concomitant]
     Active Substance: ESOMEPRAZOLE MAGNESIUM
     Dosage: 1 CAPSULE (40 MG) DAILY BEFORE BREAKFAST
  10. ZETIA [Concomitant]
     Active Substance: EZETIMIBE
     Dosage: 1 TABLET (10 MG TOTAL) DAILY
     Route: 048
  11. FLONASE [Concomitant]
     Active Substance: FLUTICASONE PROPIONATE
     Dosage: 2 SPRAYS INTO EACH NOSTRIL DAILY 50 MCG/ACTUATION
     Route: 045
  12. LASIX [Concomitant]
     Active Substance: FUROSEMIDE
     Dosage: 1 TABLET (40 MG TOTAL) DAILY
     Route: 048
  13. NEURONTIN [Concomitant]
     Active Substance: GABAPENTIN
     Dosage: 1 CAPSULE (300 MG TOTAL) NIGHTLY
     Route: 048
  14. AMARYL [Concomitant]
     Active Substance: GLIMEPIRIDE
     Dosage: 2 TABLETS IN THE MORNING WITH BREAKFAST AND 2 IN THE EVENING WITH SUPPER
     Route: 048
  15. HYDROCORTISONE [Concomitant]
     Active Substance: HYDROCORTISONE
     Dosage: UNK, PRN
     Route: 061
  16. DUONEB [Concomitant]
     Active Substance: ALBUTEROL SULFATE\IPRATROPIUM BROMIDE
     Indication: Wheezing
     Dosage: 3 ML BY NEBULIZATION 4 (TIMES) A DAY AS NEEDED STRENGTH: 0.5-2.5 MG/3ML
  17. NIZORAL [Concomitant]
     Active Substance: KETOCONAZOLE
     Dosage: UNK
     Route: 061
  18. SYNTHROID [Concomitant]
     Active Substance: LEVOTHYROXINE SODIUM
     Dosage: 1/2 TABLET ON SUNDAY AND 1 TABLET DAILY THE REST OF THE DAYS.TAKE ON EMPTY STOMACH,30-60 MINUTESPRIO
     Route: 048
  19. COZAAR [Concomitant]
     Active Substance: LOSARTAN POTASSIUM
     Dosage: 1 TABLET (25 MG TOTAL) ONCE DAILY
     Route: 048
  20. MAGOX [Concomitant]
     Dosage: 1 TABLET (400 MG TOTAL) 2 (TWO) TIMES A DAY
     Route: 048
  21. MELATONIN [Concomitant]
     Active Substance: MELATONIN
     Indication: Sleep disorder
     Dosage: 1 CAPSULE NIGHTLYAS NEEDED
  22. GLUCOPHAGE XR [Concomitant]
     Active Substance: METFORMIN HYDROCHLORIDE
     Dosage: 1 TABLET (500 MG TOTAL) DAILY WITH BREAKFAST
     Route: 048
  23. SINGULAIR [Concomitant]
     Active Substance: MONTELUKAST SODIUM
     Dosage: 1 TABLET (10 MG TOTAL) NIGHTLY
  24. BACTROBAN [Concomitant]
     Active Substance: MUPIROCIN\MUPIROCIN CALCIUM
     Dosage: APPLY TOPICALLY 2(TWO) TIMES A DAY AS NEEDED
  25. NITROSTAT [Concomitant]
     Active Substance: NITROGLYCERIN
     Dosage: DISSOLVE ONE TABLET UNDER THE TONGUE EVERY 5 MINUTES AS NEEDED FOR CHEST PAIN. DO NOT EXCEED A TOTAL
     Route: 060
  26. ZOLOFT [Concomitant]
     Active Substance: SERTRALINE HYDROCHLORIDE
     Dosage: 1 TABLET (25 MG TOTAL) DAILY
     Route: 048
  27. ALDACTONE [Concomitant]
     Active Substance: SPIRONOLACTONE
     Dosage: 1 TABLET (25 MG TOTAL) DAILY
     Route: 048
  28. CARAFATE [Concomitant]
     Active Substance: SUCRALFATE
     Dosage: 1 TABLET DAILY
  29. COENZYME Q10 [Concomitant]
     Active Substance: DIETARY SUPPLEMENT\UBIDECARENONE
     Dosage: 1 TABLET ONCE DAILY
     Route: 048
  30. VITAMIN B-COMPLEX [Concomitant]
     Active Substance: DEXPANTHENOL\NIACINAMIDE\PYRIDOXINE HYDROCHLORIDE\RIBOFLAVIN 5^-PHOSPHATE SODIUM\THIAMINE HYDROCHLOR
     Dosage: 1 CAPSULE DAILY
     Route: 048
  31. AMBIEN [Concomitant]
     Active Substance: ZOLPIDEM TARTRATE
     Dosage: 1 TABLET AT BEDTIME ASNEEDED FOR SLEEP

REACTIONS (2)
  - Bursitis [Not Recovered/Not Resolved]
  - Blood glucose decreased [Recovered/Resolved]

NARRATIVE: CASE EVENT DATE: 20220602
